FAERS Safety Report 4972088-0 (Version None)
Quarter: 2006Q2

REPORT INFORMATION
  Report Type: 
  Country: None (occurrence: None)
  Receive Date: 20060407
  Receipt Date: 20060403
  Transmission Date: 20061013
  Serious: Yes (Other)
  Sender: FDA-Public Use
  Company Number: 2006SI000055

PATIENT
  Age: 7 Day
  Sex: Male

DRUGS (10)
  1. INOMAX [Suspect]
     Indication: LUNG DISORDER
     Dosage: 5 PPM; CONT; INH (5RPM, INH-GAS, INH; CONT)
     Route: 055
     Dates: start: 20060317
  2. INOMAX [Suspect]
     Indication: PROPHYLAXIS
     Dosage: 5 PPM; CONT; INH (5RPM, INH-GAS, INH; CONT)
     Route: 055
     Dates: start: 20060317
  3. AMPICILLIN SODIUM [Concomitant]
  4. GENTAMICIN [Concomitant]
  5. AMINOPHYLLINE [Concomitant]
  6. INDOMETHACIN [Concomitant]
  7. FUROSEMIDE [Concomitant]
  8. FENTANYL [Concomitant]
  9. CEFOTAXIME [Concomitant]
  10. METRONIDAZOLE [Concomitant]

REACTIONS (6)
  - ILEAL PERFORATION [None]
  - INTRAVENTRICULAR HAEMORRHAGE [None]
  - NEONATAL DISORDER [None]
  - PATENT DUCTUS ARTERIOSUS [None]
  - POLYCYTHAEMIA [None]
  - VENTRICULAR HYPERTROPHY [None]
